FAERS Safety Report 8135229-2 (Version None)
Quarter: 2012Q1

REPORT INFORMATION
  Report Type: 
  Country: None (occurrence: None)
  Receive Date: 20120214
  Receipt Date: 20120208
  Transmission Date: 20120608
  Serious: Yes (Hospitalization)
  Sender: FDA-Public Use
  Company Number: US-ACTELION-A-NJ2012-60943

PATIENT

DRUGS (6)
  1. VENTAVIS [Suspect]
     Indication: PULMONARY ARTERIAL HYPERTENSION
     Dosage: UNK
     Route: 055
     Dates: start: 20120201
  2. COUMADIN [Concomitant]
  3. REVATIO [Concomitant]
  4. CALCIUM CHANNEL BLOCKERS [Concomitant]
  5. OXYGEN [Concomitant]
  6. VENTAVIS [Suspect]
     Dosage: UNK
     Route: 055
     Dates: start: 20120101

REACTIONS (4)
  - DRUG DOSE OMISSION [None]
  - SWELLING [None]
  - ARRHYTHMIA [None]
  - FLUID RETENTION [None]
